FAERS Safety Report 9788967 (Version 3)
Quarter: 2014Q2

REPORT INFORMATION
  Report Type: Spontaneous
  Country: US (occurrence: US)
  Receive Date: 20131230
  Receipt Date: 20140415
  Transmission Date: 20141212
  Serious: No
  Sender: FDA-Public Use
  Company Number: US-B.I. PHARMACEUTICALS,INC./RIDGEFIELD-2013-BI-42772BP

PATIENT
  Age: 64 Year
  Sex: Male
  Weight: 102 kg

DRUGS (12)
  1. SPIRIVA [Suspect]
     Indication: CHRONIC OBSTRUCTIVE PULMONARY DISEASE
     Dosage: 18 MCG
     Route: 055
  2. ALBUTERON HFA [Concomitant]
     Indication: CHRONIC OBSTRUCTIVE PULMONARY DISEASE
     Dosage: 180 MCG
     Route: 055
  3. LEXAPRO [Concomitant]
     Indication: BIPOLAR DISORDER
     Dosage: 20 MG
     Route: 055
  4. LOVASA [Concomitant]
     Indication: BLOOD CHOLESTEROL INCREASED
     Dosage: 4 G
     Route: 048
  5. NORTRIPTYLINE [Concomitant]
     Indication: BIPOLAR DISORDER
     Dosage: 20 MG
     Route: 048
  6. NASONEX [Concomitant]
     Indication: HYPERSENSITIVITY
     Dosage: FORMULATION: NASAL SPRAY
     Route: 045
  7. LIPITOR [Concomitant]
     Indication: BLOOD CHOLESTEROL INCREASED
     Dosage: 20 MG
     Route: 048
  8. LITHIUM CARBONATE [Concomitant]
     Indication: DEPRESSION
     Dosage: 300 MG
     Route: 048
  9. ZALEPLON [Concomitant]
     Indication: SLEEP DISORDER
     Dosage: 10 MG
     Route: 048
  10. TYLENOL ARTHRITIS [Concomitant]
     Indication: PAIN
     Dosage: 2600 MG
     Route: 048
  11. CLONIDINE [Concomitant]
     Indication: ANXIETY
     Dosage: 0.1 MG
     Route: 048
  12. CLONIDINE [Concomitant]
     Route: 048

REACTIONS (8)
  - Chest pain [Recovered/Resolved]
  - Neck pain [Recovered/Resolved]
  - Pain in jaw [Recovered/Resolved]
  - Heart rate increased [Recovered/Resolved]
  - Blood pressure increased [Not Recovered/Not Resolved]
  - Dyspnoea [Recovered/Resolved]
  - Product quality issue [Recovered/Resolved]
  - Product quality issue [Recovered/Resolved]
